FAERS Safety Report 16206582 (Version 3)
Quarter: 2019Q4

REPORT INFORMATION
  Report Type: Report from Study
  Country: GB (occurrence: GB)
  Receive Date: 20190417
  Receipt Date: 20191101
  Transmission Date: 20200122
  Serious: Yes (Other)
  Sender: FDA-Public Use
  Company Number: PHHY2019GB023916

PATIENT
  Sex: Female

DRUGS (2)
  1. ERELZI [Suspect]
     Active Substance: ETANERCEPT-SZZS
     Dosage: 50 MG, QW
     Route: 058
     Dates: start: 20181115
  2. ERELZI [Suspect]
     Active Substance: ETANERCEPT-SZZS
     Indication: RHEUMATOID ARTHRITIS
     Dosage: 50 MG, QW
     Route: 058
     Dates: start: 20181105

REACTIONS (9)
  - Sinus pain [Unknown]
  - Nasopharyngitis [Unknown]
  - Drug ineffective [Unknown]
  - Paranasal sinus haemorrhage [Unknown]
  - Ill-defined disorder [Unknown]
  - Productive cough [Unknown]
  - Infection [Unknown]
  - Sinus congestion [Unknown]
  - Paranasal sinus hyposecretion [Unknown]
